FAERS Safety Report 24660273 (Version 1)
Quarter: 2024Q4

REPORT INFORMATION
  Report Type: Spontaneous
  Country: IT (occurrence: IT)
  Receive Date: 20241125
  Receipt Date: 20241125
  Transmission Date: 20250115
  Serious: Yes (Death, Other)
  Sender: BRISTOL-MYERS SQUIBB COMPANY
  Company Number: None

PATIENT
  Age: 68 Year
  Sex: Male
  Weight: 69 kg

DRUGS (4)
  1. OPDIVO [Suspect]
     Active Substance: NIVOLUMAB
     Indication: Gastric cancer stage IV
     Dosage: 240 MG EVERY 14 DAYS?22/10/2024 - III CYCLE FOLFOX 6 + NIVO 2ND ADMINISTRATION
     Route: 042
     Dates: start: 20241002, end: 20241023
  2. OXALIPLATIN [Suspect]
     Active Substance: OXALIPLATIN
     Indication: Gastric cancer stage IV
     Dosage: 100 MG/M2 EVERY 21 DAYS: DOSE PERFORMED REDUCED BY20%
     Route: 042
     Dates: start: 20240911, end: 20241023
  3. FLUOROURACIL [Suspect]
     Active Substance: FLUOROURACIL
     Indication: Gastric cancer stage IV
     Dosage: 585MG IV ON 11/09, 2 AND 23/10. 3513 MG I.C. 44 HOURS ON 11/09 AND 2/10
     Route: 042
     Dates: start: 20240911, end: 20241023
  4. FLUOROURACIL\LEUCOVORIN CALCIUM\OXALIPLATIN [Concomitant]
     Active Substance: FLUOROURACIL\LEUCOVORIN CALCIUM\OXALIPLATIN
     Indication: Product used for unknown indication
     Dosage: III CYCLE FOLFOX 6 + NIVO 2ND ADMINISTRATION
     Dates: start: 20241022

REACTIONS (6)
  - Sudden cardiac death [Fatal]
  - Asthenia [Unknown]
  - Nausea [Unknown]
  - Osteoarthritis [Unknown]
  - Back pain [Unknown]
  - Oedema [Unknown]

NARRATIVE: CASE EVENT DATE: 20241023
